FAERS Safety Report 14529783 (Version 6)
Quarter: 2019Q1

REPORT INFORMATION
  Report Type: Report from Study
  Country: IN (occurrence: IN)
  Receive Date: 20180214
  Receipt Date: 20190131
  Transmission Date: 20190417
  Serious: Yes (Death, Hospitalization)
  Sender: FDA-Public Use
  Company Number: PHHO2018IN002118

PATIENT
  Age: 75 Year
  Sex: Female
  Weight: 53 kg

DRUGS (8)
  1. ZOLEDRONIC ACID. [Concomitant]
     Active Substance: ZOLEDRONIC ACID
     Indication: PRODUCT USED FOR UNKNOWN INDICATION
     Dosage: 4 MG IN 100 ML NS EVERY 4 WEEKS
     Route: 042
  2. LEE011 [Suspect]
     Active Substance: RIBOCICLIB
     Indication: BREAST CANCER
     Dosage: 600 MG, OD 3 WEEK ON AND 01 WEEK OFF
     Route: 048
     Dates: start: 20180108, end: 20180128
  3. CYPROHEPTADINE. [Concomitant]
     Active Substance: CYPROHEPTADINE
     Indication: DECREASED APPETITE
     Dosage: 2 MG, BID
     Route: 048
     Dates: start: 20180119, end: 20180128
  4. SHELCAL HD [Concomitant]
     Indication: PRODUCT USED FOR UNKNOWN INDICATION
     Dosage: 500 MG, BID
     Route: 065
  5. BECOZYME FORTE [Concomitant]
     Indication: VITAMIN SUPPLEMENTATION
     Dosage: 1 DF, QD
     Route: 048
     Dates: start: 20180119
  6. FOLIMAX [Concomitant]
     Indication: NUTRITIONAL SUPPLEMENTATION
     Dosage: 5 MG, BID
     Route: 048
     Dates: start: 20180123, end: 20180201
  7. DERIPHYLLIN [Concomitant]
     Active Substance: ETOFYLLINE\THEOPHYLLINE
     Indication: COUGH
     Dosage: 1 DF, QD (150 MG)
     Route: 048
     Dates: start: 20180119, end: 20180128
  8. LETROZOLE. [Suspect]
     Active Substance: LETROZOLE
     Indication: BREAST CANCER
     Dosage: 2.5 MG, QD
     Route: 048
     Dates: start: 20180108, end: 20180201

REACTIONS (3)
  - Arrhythmia [Fatal]
  - Left ventricular dysfunction [Fatal]
  - Cardiac arrest [Fatal]

NARRATIVE: CASE EVENT DATE: 20180201
